FAERS Safety Report 10741385 (Version 4)
Quarter: 2015Q3

REPORT INFORMATION
  Report Type: Report from Study
  Country: US (occurrence: US)
  Receive Date: 20150127
  Receipt Date: 20150706
  Transmission Date: 20151125
  Serious: Yes (Other)
  Sender: FDA-Public Use
  Company Number: US-SA-2014SA147871

PATIENT
  Age: 60 Year
  Sex: Male

DRUGS (1)
  1. AUBAGIO [Suspect]
     Active Substance: TERIFLUNOMIDE
     Indication: MULTIPLE SCLEROSIS
     Route: 048
     Dates: start: 20140927

REACTIONS (8)
  - Musculoskeletal pain [Unknown]
  - Weight decreased [Unknown]
  - Memory impairment [Unknown]
  - Paraesthesia [Unknown]
  - Arthritis [Unknown]
  - Chromaturia [Unknown]
  - Pruritus [Not Recovered/Not Resolved]
  - Dysgraphia [Unknown]
